FAERS Safety Report 16090166 (Version 3)
Quarter: 2019Q2

REPORT INFORMATION
  Report Type: Spontaneous
  Country: US (occurrence: US)
  Receive Date: 20190315
  Receipt Date: 20190412
  Transmission Date: 20190711
  Serious: No
  Sender: FDA-Public Use
  Company Number: US-ARALEZ PHARMACEUTICALS R+D INC.-2019-ARA-000771

PATIENT
  Sex: Female
  Weight: 55.78 kg

DRUGS (4)
  1. METOPROLOL SUCCINATE. [Suspect]
     Active Substance: METOPROLOL SUCCINATE
     Indication: BLOOD PRESSURE INCREASED
     Dosage: 100 MG DAILY
     Route: 048
     Dates: start: 2005
  2. CHLORZOXAZONE. [Concomitant]
     Active Substance: CHLORZOXAZONE
     Indication: OSTEOPOROSIS
     Dosage: UNK
     Dates: start: 2005
  3. LISINOPRIL. [Suspect]
     Active Substance: LISINOPRIL
     Indication: BLOOD PRESSURE INCREASED
     Dosage: 10 MG DAILY
     Route: 048
     Dates: start: 2005
  4. CRESTOR [Concomitant]
     Active Substance: ROSUVASTATIN CALCIUM
     Indication: PRODUCT USED FOR UNKNOWN INDICATION
     Dosage: 5 MG DAILY
     Route: 048
     Dates: start: 2005

REACTIONS (2)
  - Blood pressure inadequately controlled [Not Recovered/Not Resolved]
  - Product substitution issue [Not Recovered/Not Resolved]

NARRATIVE: CASE EVENT DATE: 2005
